FAERS Safety Report 7489526-4 (Version None)
Quarter: 2011Q2

REPORT INFORMATION
  Report Type: 
  Country: None (occurrence: None)
  Receive Date: 20110519
  Receipt Date: 20110426
  Transmission Date: 20111010
  Serious: Yes (Hospitalization)
  Sender: FDA-Public Use
  Company Number: FR-RANBAXY-2011RR-44137

PATIENT
  Sex: Female

DRUGS (25)
  1. LEVOTHYROXINE SODIUM [Concomitant]
     Indication: PRODUCT USED FOR UNKNOWN INDICATION
     Dosage: 25 MG, UNK
     Route: 048
     Dates: end: 20110216
  2. ASPIRIN [Concomitant]
     Indication: PRODUCT USED FOR UNKNOWN INDICATION
     Dosage: 75 MG, UNK
     Route: 065
  3. TENORMIN [Concomitant]
     Indication: PRODUCT USED FOR UNKNOWN INDICATION
     Dosage: 100 MG, UNK
     Route: 065
     Dates: end: 20110216
  4. ACETAMINOPHEN [Concomitant]
     Indication: PRODUCT USED FOR UNKNOWN INDICATION
     Dosage: 3 G, UNK
     Route: 065
     Dates: end: 20110216
  5. FENOFIBRATE [Suspect]
     Indication: PRODUCT USED FOR UNKNOWN INDICATION
     Dosage: 145 MG, UNK
     Route: 048
     Dates: end: 20110216
  6. XANAX 0.50MG [Concomitant]
     Dosage: 1 MG, UNK
     Route: 048
     Dates: start: 20110201, end: 20110223
  7. CLARITHROMYCIN [Suspect]
     Indication: PRODUCT USED FOR UNKNOWN INDICATION
     Dosage: 1000 MG, UNK
     Route: 048
     Dates: start: 20110223, end: 20110301
  8. IRBESARTAN + HYDROCHLOROTHIAZIDE [Suspect]
     Dosage: UNK
     Route: 048
     Dates: start: 20110201, end: 20110223
  9. PANTOPRAZOLE SODIUM [Suspect]
     Indication: HELICOBACTER INFECTION
     Dosage: 80 MG, UNK
     Route: 048
     Dates: start: 20110217, end: 20110228
  10. DIFFU K [Concomitant]
     Indication: PRODUCT USED FOR UNKNOWN INDICATION
     Dosage: 3 DF, UNK
     Route: 048
     Dates: start: 20110221, end: 20110222
  11. SEROPRAM 20MG [Concomitant]
     Indication: PRODUCT USED FOR UNKNOWN INDICATION
     Dosage: 20 MG, UNK
     Route: 048
     Dates: start: 20110223
  12. AERIUS [Concomitant]
     Indication: PRODUCT USED FOR UNKNOWN INDICATION
     Dosage: 5 MG, UNK
     Route: 065
  13. HALDOL [Concomitant]
     Indication: PRODUCT USED FOR UNKNOWN INDICATION
     Dosage: 3 DROPS
     Route: 065
     Dates: end: 20110216
  14. OFLOCET 200MG [Concomitant]
     Indication: URINARY TRACT INFECTION
     Dosage: 400 MG, UNK
     Route: 048
     Dates: start: 20110221, end: 20110222
  15. ATARAX 25MG [Concomitant]
     Indication: PRODUCT USED FOR UNKNOWN INDICATION
     Dosage: 25 MG, UNK
     Route: 048
     Dates: end: 20110216
  16. ATARAX 25MG [Concomitant]
     Dosage: 25 MG, UNK
     Route: 048
     Dates: start: 20110201, end: 20110222
  17. MEPRONIZINE [Concomitant]
     Indication: PRODUCT USED FOR UNKNOWN INDICATION
     Dosage: 1 DF, UNK
     Route: 065
     Dates: end: 20110216
  18. AMOXICILLIN [Suspect]
     Indication: PRODUCT USED FOR UNKNOWN INDICATION
     Dosage: 3 G, UNK
     Route: 048
     Dates: start: 20110222, end: 20110303
  19. XANAX 0.50MG [Concomitant]
     Indication: PRODUCT USED FOR UNKNOWN INDICATION
     Dosage: 1 MG, UNK
     Route: 048
     Dates: end: 20110216
  20. LEVOTHYROXINE SODIUM [Concomitant]
     Dosage: 25 MG, UNK
     Route: 048
  21. INNOHEP 0.6ML [Concomitant]
     Indication: THROMBOSIS
     Dosage: 0.6 ML, UNK
     Route: 058
     Dates: start: 20110221, end: 20110223
  22. FORLAX [Concomitant]
     Indication: PRODUCT USED FOR UNKNOWN INDICATION
     Dosage: 2 DF, UNK
     Route: 048
     Dates: start: 20110223, end: 20110228
  23. FENOFIBRATE [Suspect]
     Dosage: 145 MG, UNK
     Route: 048
     Dates: start: 20110201, end: 20110223
  24. IRBESARTAN + HYDROCHLOROTHIAZIDE [Suspect]
     Indication: PRODUCT USED FOR UNKNOWN INDICATION
     Dosage: UNK
     Route: 048
     Dates: end: 20110216
  25. TIMOFEROL [Concomitant]
     Indication: PRODUCT USED FOR UNKNOWN INDICATION
     Dosage: 2 DF, UNK
     Route: 065
     Dates: end: 20110216

REACTIONS (1)
  - RENAL FAILURE ACUTE [None]
